FAERS Safety Report 4629205-1 (Version None)
Quarter: 2005Q2

REPORT INFORMATION
  Report Type: 
  Country: None (occurrence: None)
  Receive Date: 20050404
  Receipt Date: 20050404
  Transmission Date: 20051028
  Serious: Yes (Disabling, Other)
  Sender: FDA-Public Use
  Company Number: None

PATIENT
  Age: 54 Year
  Sex: Female
  Weight: 81.6475 kg

DRUGS (1)
  1. FENTANYL PATCH (GENERIC) (MYLAN) [Suspect]
     Indication: ARTHRALGIA
     Dosage: 100 MCG Q 2 D
     Dates: start: 20050318, end: 20050324

REACTIONS (5)
  - ARTHRALGIA [None]
  - HEADACHE [None]
  - MOVEMENT DISORDER [None]
  - PHARMACEUTICAL PRODUCT COMPLAINT [None]
  - WHEELCHAIR USER [None]
